FAERS Safety Report 9724726 (Version 1)
Quarter: 2013Q4

REPORT INFORMATION
  Report Type: Spontaneous
  Country: US (occurrence: US)
  Receive Date: 20131202
  Receipt Date: 20131202
  Transmission Date: 20140711
  Serious: No
  Sender: FDA-Public Use
  Company Number: US-009507513-1311USA008996

PATIENT
  Sex: Male

DRUGS (1)
  1. AZASITE [Suspect]
     Indication: EYE DISORDER
     Dosage: UNK
     Dates: start: 2012

REACTIONS (1)
  - Eyelid disorder [Unknown]
